FAERS Safety Report 5605506-5 (Version None)
Quarter: 2008Q1

REPORT INFORMATION
  Report Type: 
  Country: None (occurrence: None)
  Receive Date: 20080124
  Receipt Date: 20080124
  Transmission Date: 20080703
  Serious: Yes (Hospitalization)
  Sender: FDA-Public Use
  Company Number: None

PATIENT
  Age: 7 Year
  Sex: Male
  Weight: 22.6799 kg

DRUGS (2)
  1. HEPARIN LOCK-FLUSH [Suspect]
     Indication: INTRAVENOUS CATHETER MANAGEMENT
     Dosage: 5ML PRN IV BOLUS
     Route: 040
     Dates: start: 20060630, end: 20080118
  2. RECOMBINATE [Concomitant]

REACTIONS (6)
  - BODY TEMPERATURE INCREASED [None]
  - CATHETER RELATED COMPLICATION [None]
  - CHILLS [None]
  - CULTURE POSITIVE [None]
  - PHARMACEUTICAL PRODUCT COMPLAINT [None]
  - TREMOR [None]
